FAERS Safety Report 6916507-9 (Version None)
Quarter: 2010Q3

REPORT INFORMATION
  Report Type: 
  Country: None (occurrence: None)
  Receive Date: 20100804
  Receipt Date: 20100426
  Transmission Date: 20110219
  Serious: No
  Sender: FDA-Public Use
  Company Number: 2009US001036

PATIENT

DRUGS (1)
  1. AMEVIVE [Suspect]
     Indication: GUTTATE PSORIASIS
     Dosage: 15MG, WEEKLY, INTRAMUSCULAR
     Route: 030
     Dates: start: 20050415, end: 20050912

REACTIONS (2)
  - ATRIAL FIBRILLATION [None]
  - CELLULITIS [None]
